FAERS Safety Report 11158066 (Version 1)
Quarter: 2015Q2

REPORT INFORMATION
  Report Type: Spontaneous
  Country: US (occurrence: US)
  Receive Date: 20150603
  Receipt Date: 20150603
  Transmission Date: 20150821
  Serious: No
  Sender: FDA-Public Use
  Company Number: US-009507513-1505USA014679

PATIENT
  Age: 64 Year
  Sex: Female

DRUGS (3)
  1. SINGULAIR [Concomitant]
     Active Substance: MONTELUKAST SODIUM
     Dosage: UNK
  2. BELSOMRA [Suspect]
     Active Substance: SUVOREXANT
     Indication: INSOMNIA
     Dosage: DOSE: 10 MG, FREQUENCY REPORTED AS 1 TABLET
     Route: 048
     Dates: start: 20150526
  3. SINEMET [Concomitant]
     Active Substance: CARBIDOPA\LEVODOPA
     Dosage: UNK

REACTIONS (5)
  - Dizziness [Unknown]
  - Somnolence [Unknown]
  - Gait disturbance [Unknown]
  - Drug ineffective [Unknown]
  - Mental impairment [Unknown]

NARRATIVE: CASE EVENT DATE: 20150526
